FAERS Safety Report 4526701-2 (Version None)
Quarter: 2004Q4

REPORT INFORMATION
  Report Type: 
  Country: None (occurrence: None)
  Receive Date: 20041213
  Receipt Date: 20041129
  Transmission Date: 20050328
  Serious: Yes (Hospitalization)
  Sender: FDA-Public Use
  Company Number: 206730

PATIENT
  Age: 69 Year
  Sex: Male
  Weight: 83.9154 kg

DRUGS (2)
  1. AVONEX [Suspect]
     Indication: MULTIPLE SCLEROSIS
     Dosage: IM
     Route: 030
     Dates: start: 20010101
  2. FOLIC ACID [Concomitant]

REACTIONS (5)
  - CARDIAC DISORDER [None]
  - CAROTID ARTERY OCCLUSION [None]
  - CEREBROVASCULAR ACCIDENT [None]
  - CORONARY ARTERIAL STENT INSERTION [None]
  - HYPERTENSION [None]
